FAERS Safety Report 23700683 (Version 4)
Quarter: 2024Q2

REPORT INFORMATION
  Report Type: Spontaneous
  Country: HR (occurrence: HR)
  Receive Date: 20240403
  Receipt Date: 20240430
  Transmission Date: 20240716
  Serious: Yes (Hospitalization, Other)
  Sender: FDA-Public Use
  Company Number: None

PATIENT
  Age: 31 Year
  Sex: Female

DRUGS (4)
  1. PREDNISONE [Suspect]
     Active Substance: PREDNISONE
     Indication: Immunosuppressant drug therapy
     Dosage: UNK
  2. ANTI-THYMOCYTE GLOBULIN (RABBIT) NOS [Suspect]
     Active Substance: LAPINE T-LYMPHOCYTE IMMUNE GLOBULIN
     Indication: Kidney transplant rejection
     Dosage: UNK
  3. MYCOPHENOLATE MOFETIL [Suspect]
     Active Substance: MYCOPHENOLATE MOFETIL
     Indication: Immunosuppressant drug therapy
     Dosage: UNK
  4. TACROLIMUS [Suspect]
     Active Substance: TACROLIMUS
     Indication: Immunosuppressant drug therapy
     Dosage: 2 MG, QD

REACTIONS (13)
  - Disseminated aspergillosis [Recovering/Resolving]
  - Pyrexia [Recovering/Resolving]
  - Skin lesion [Recovering/Resolving]
  - Gastrointestinal disorder [Recovering/Resolving]
  - Neutropenia [Recovering/Resolving]
  - Lung infiltration [Recovering/Resolving]
  - Thyroiditis [Recovering/Resolving]
  - Cystitis haemorrhagic [Recovering/Resolving]
  - Aspergillus infection [Recovering/Resolving]
  - Bronchopulmonary aspergillosis [Recovering/Resolving]
  - Leukopenia [Recovering/Resolving]
  - Cytomegalovirus infection [Recovering/Resolving]
  - Enterobacter infection [Recovering/Resolving]
